FAERS Safety Report 23191404 (Version 1)
Quarter: 2023Q4

REPORT INFORMATION
  Report Type: Other
  Country: US (occurrence: US)
  Receive Date: 20231116
  Receipt Date: 20231116
  Transmission Date: 20240109
  Serious: No
  Sender: FDA-Public Use
  Company Number: US-TRAVERE-2023TVT00608

PATIENT
  Age: 40 Year
  Sex: Male

DRUGS (7)
  1. FILSPARI [Suspect]
     Active Substance: SPARSENTAN
     Indication: IgA nephropathy
     Route: 048
     Dates: start: 20230822
  2. FILSPARI [Suspect]
     Active Substance: SPARSENTAN
     Route: 048
  3. ATORVASTATIN CALCIUM [Concomitant]
     Active Substance: ATORVASTATIN CALCIUM
  4. FARXIGA [Concomitant]
     Active Substance: DAPAGLIFLOZIN PROPANEDIOL
  5. FISH OIL [Concomitant]
     Active Substance: FISH OIL
  6. Probiotic 10 B [Concomitant]
  7. Vitamin D 1250 [Concomitant]

REACTIONS (4)
  - Wrong technique in product usage process [Unknown]
  - Hepatic enzyme increased [Recovering/Resolving]
  - Erythema [Unknown]
  - Pruritus [Unknown]
